FAERS Safety Report 4551132-9 (Version None)
Quarter: 2005Q1

REPORT INFORMATION
  Report Type: 
  Country: None (occurrence: None)
  Receive Date: 20050113
  Receipt Date: 20041231
  Transmission Date: 20050727
  Serious: Yes (Hospitalization)
  Sender: FDA-Public Use
  Company Number: FR-JNJFOC-20041207645

PATIENT
  Age: 28 Year
  Sex: Male

DRUGS (3)
  1. REMICADE [Suspect]
     Route: 042
  2. REMICADE [Suspect]
     Indication: CROHN'S DISEASE
     Route: 042
  3. CORTANCYL [Concomitant]
     Indication: CROHN'S DISEASE
     Route: 049

REACTIONS (12)
  - ABDOMINAL PAIN [None]
  - ANORECTAL DISORDER [None]
  - ARTHRALGIA [None]
  - DIARRHOEA [None]
  - DRUG INEFFECTIVE [None]
  - MYALGIA [None]
  - PRURITUS [None]
  - PYREXIA [None]
  - RASH [None]
  - TYPE IV HYPERSENSITIVITY REACTION [None]
  - URTICARIA [None]
  - VOMITING [None]
